FAERS Safety Report 24138183 (Version 4)
Quarter: 2025Q3

REPORT INFORMATION
  Report Type: Spontaneous
  Country: US (occurrence: US)
  Receive Date: 20240725
  Receipt Date: 20250901
  Transmission Date: 20251020
  Serious: Yes (Hospitalization)
  Sender: SANOFI AVENTIS
  Company Number: US-SA-SAC20240722001068

PATIENT
  Age: 76 Year
  Sex: Female

DRUGS (4)
  1. DUPIXENT [Suspect]
     Active Substance: DUPILUMAB
     Indication: Nasal polyps
     Dosage: 300 MG, QOW
     Route: 058
  2. DULOXETINE [Suspect]
     Active Substance: DULOXETINE
     Indication: Panic attack
  3. DULOXETINE [Suspect]
     Active Substance: DULOXETINE
     Indication: Anxiety
  4. DULOXETINE [Suspect]
     Active Substance: DULOXETINE
     Indication: Neuralgia

REACTIONS (12)
  - Illness [Recovered/Resolved]
  - Weight decreased [Unknown]
  - Asthenia [Unknown]
  - COVID-19 [Unknown]
  - Withdrawal syndrome [Unknown]
  - Heart rate increased [Unknown]
  - Blood pressure increased [Unknown]
  - Anxiety [Unknown]
  - Fatigue [Unknown]
  - Feeling abnormal [Unknown]
  - Vomiting [Recovered/Resolved]
  - Therapeutic response decreased [Unknown]
